FAERS Safety Report 20312441 (Version 1)
Quarter: 2022Q1

REPORT INFORMATION
  Report Type: Spontaneous
  Country: US (occurrence: None)
  Receive Date: 20220107
  Receipt Date: 20220107
  Transmission Date: 20220423
  Serious: Yes (Hospitalization)
  Sender: FDA-Public Use
  Company Number: None

PATIENT
  Age: 61 Year
  Sex: Female

DRUGS (1)
  1. CASIRIVIMAB\IMDEVIMAB [Suspect]
     Active Substance: CASIRIVIMAB\IMDEVIMAB
     Indication: COVID-19
     Dosage: OTHER FREQUENCY : ONCE;?
     Route: 058
     Dates: start: 20211227, end: 20211227

REACTIONS (10)
  - Anaemia [None]
  - Dizziness [None]
  - Nausea [None]
  - Dyspnoea [None]
  - Gastrointestinal haemorrhage [None]
  - Jaundice [None]
  - Hepatic cirrhosis [None]
  - Portal hypertension [None]
  - Splenomegaly [None]
  - Ascites [None]

NARRATIVE: CASE EVENT DATE: 20220104
